FAERS Safety Report 14319461 (Version 1)
Quarter: 2017Q4

REPORT INFORMATION
  Report Type: Spontaneous
  Country: BR (occurrence: BR)
  Receive Date: 20171222
  Receipt Date: 20171222
  Transmission Date: 20180321
  Serious: Yes (Other)
  Sender: FDA-Public Use
  Company Number: BR-MYLANLABS-2017M1080584

PATIENT
  Age: 48 Year
  Sex: Female

DRUGS (6)
  1. RIFAMPICIN [Suspect]
     Active Substance: RIFAMPIN
     Indication: LEPROMATOUS LEPROSY
     Dosage: 600MG MONTHLY
     Route: 065
     Dates: end: 200910
  2. CLOFAZIMINE [Suspect]
     Active Substance: CLOFAZIMINE
     Dosage: 300MG MONTHLY
     Route: 065
     Dates: end: 200910
  3. THALIDOMIDE [Suspect]
     Active Substance: THALIDOMIDE
     Indication: LEPROSY
     Dosage: 200MG/DAY
     Route: 065
  4. CLOFAZIMINE [Suspect]
     Active Substance: CLOFAZIMINE
     Indication: LEPROMATOUS LEPROSY
     Dosage: 50MG DAILY
     Route: 065
     Dates: end: 200910
  5. PREDNISONE. [Suspect]
     Active Substance: PREDNISONE
     Indication: LEPROSY
     Dosage: HIGH DOSE PREDNISONE; MINIMUM DOSE 40 MG DAILY.
     Route: 065
  6. DAPSONE. [Suspect]
     Active Substance: DAPSONE
     Indication: LEPROMATOUS LEPROSY
     Dosage: 100MG DAILY
     Route: 065
     Dates: end: 200910

REACTIONS (1)
  - Phaehyphomycosis [Recovered/Resolved]
